FAERS Safety Report 10590155 (Version 2)
Quarter: 2014Q4

REPORT INFORMATION
  Report Type: Spontaneous
  Country: US (occurrence: US)
  Receive Date: 20141118
  Receipt Date: 20141120
  Transmission Date: 20150529
  Serious: No
  Sender: FDA-Public Use
  Company Number: US-PFIZER INC-2014314259

PATIENT
  Age: 69 Year
  Sex: Female
  Weight: 141 kg

DRUGS (6)
  1. LYRICA [Suspect]
     Active Substance: PREGABALIN
     Indication: PAIN IN EXTREMITY
  2. LYRICA [Suspect]
     Active Substance: PREGABALIN
     Indication: NECK PAIN
     Dosage: 150 MG, 3X/DAY
     Dates: start: 201303
  3. LYRICA [Suspect]
     Active Substance: PREGABALIN
     Indication: BACK PAIN
     Dosage: 200 MG, 3X/DAY
     Dates: end: 201410
  4. TRIAMTERENE. [Concomitant]
     Active Substance: TRIAMTERENE
  5. DIURETIC /00022001/ [Concomitant]
     Active Substance: HYDROCHLOROTHIAZIDE
  6. ALPRAZOLAM. [Concomitant]
     Active Substance: ALPRAZOLAM

REACTIONS (12)
  - Pain [Unknown]
  - Nervousness [Unknown]
  - Burning sensation [Unknown]
  - Paraesthesia [Unknown]
  - Insomnia [Unknown]
  - Heart rate increased [Unknown]
  - Feeling hot [Unknown]
  - Heart rate decreased [Unknown]
  - Feeling abnormal [Unknown]
  - Tremor [Unknown]
  - Drug withdrawal syndrome [Unknown]
  - Depression [Unknown]
